FAERS Safety Report 5073979-5 (Version None)
Quarter: 2006Q3

REPORT INFORMATION
  Report Type: 
  Country: None (occurrence: None)
  Receive Date: 20060808
  Receipt Date: 20060720
  Transmission Date: 20061208
  Serious: Yes (Disabling)
  Sender: FDA-Public Use
  Company Number: SE-ROCHE-456946

PATIENT
  Age: 26 Year
  Sex: Female
  Weight: 58 kg

DRUGS (2)
  1. ROACCUTAN [Suspect]
     Indication: ACNE
     Route: 048
     Dates: start: 20040515, end: 20041015
  2. ROACCUTAN [Suspect]
     Dosage: DOSE REDUCED STEPWISE. TOTAL DURATION OF THERAPY REPORTED AS SEVEN MONTHS.
     Route: 048
     Dates: start: 20041015, end: 20041215

REACTIONS (1)
  - HYPERTHYROIDISM [None]
